FAERS Safety Report 8382600-X (Version None)
Quarter: 2012Q2

REPORT INFORMATION
  Report Type: 
  Country: None (occurrence: None)
  Receive Date: 20120524
  Receipt Date: 20120514
  Transmission Date: 20120825
  Serious: Yes (Other)
  Sender: FDA-Public Use
  Company Number: US-JNJFOC-20120413313

PATIENT
  Sex: Male
  Weight: 100.25 kg

DRUGS (2)
  1. TRIAMTEREME/HYDROCHLOROTHIAZIDE [Concomitant]
     Indication: HYPERTENSION
  2. XARELTO [Suspect]
     Indication: DEEP VEIN THROMBOSIS
     Route: 048
     Dates: start: 20111010, end: 20111024

REACTIONS (1)
  - DEEP VEIN THROMBOSIS [None]
